FAERS Safety Report 17995910 (Version 2)
Quarter: 2020Q3

REPORT INFORMATION
  Report Type: Spontaneous
  Country: ES (occurrence: ES)
  Receive Date: 20200708
  Receipt Date: 20200928
  Transmission Date: 20201103
  Serious: Yes (Disabling, Other)
  Sender: FDA-Public Use
  Company Number: ES-JNJFOC-20200703306

PATIENT
  Age: 42 Year
  Sex: Female
  Weight: 67 kg

DRUGS (5)
  1. TOPAMAX [Suspect]
     Active Substance: TOPIRAMATE
     Dosage: 100MG (IN THE MORNING AND AT NIGHT)
     Route: 065
     Dates: start: 2020
  2. TOPAMAX [Suspect]
     Active Substance: TOPIRAMATE
     Dosage: 15MG AT NIGHT ONLY.
     Route: 065
     Dates: end: 202007
  3. VENLAFAXINA                        /01233801/ [Concomitant]
     Active Substance: VENLAFAXINE HYDROCHLORIDE
     Dosage: IN THE MORNING
  4. LORAZEPAM. [Concomitant]
     Active Substance: LORAZEPAM
     Dosage: AT NIGHT
  5. TOPAMAX [Suspect]
     Active Substance: TOPIRAMATE
     Indication: MOOD ALTERED
     Dosage: 25MG IN THE MORNING AND 25MG AT NIGHT
     Route: 065
     Dates: start: 202004

REACTIONS (9)
  - Paralysis [Recovered/Resolved]
  - Swelling [Recovered/Resolved]
  - Hypoaesthesia [Recovered/Resolved]
  - Off label use [Unknown]
  - Dizziness [Recovered/Resolved]
  - Sepsis [Recovered/Resolved]
  - Menstruation delayed [Recovered/Resolved]
  - Abdominal pain [Recovered/Resolved]
  - Product use in unapproved indication [Unknown]

NARRATIVE: CASE EVENT DATE: 2020
